FAERS Safety Report 9013589 (Version 1)
Quarter: 2013Q1

REPORT INFORMATION
  Report Type: Spontaneous
  Country: US (occurrence: None)
  Receive Date: 20130107
  Receipt Date: 20130107
  Transmission Date: 20140127
  Serious: Yes (Death)
  Sender: FDA-Public Use
  Company Number: None

PATIENT
  Age: 58 Year
  Sex: Male
  Weight: 59 kg

DRUGS (2)
  1. VALPROIC ACID [Suspect]
     Indication: COLON CANCER STAGE IV
     Route: 048
     Dates: start: 20121008, end: 20121130
  2. HYDRALAZINE [Suspect]
     Indication: COLON CANCER STAGE IV
     Route: 048
     Dates: start: 20121022, end: 20121130

REACTIONS (6)
  - Diarrhoea [None]
  - Nausea [None]
  - Decreased appetite [None]
  - Asthenia [None]
  - Colon cancer stage IV [None]
  - Malignant neoplasm progression [None]
